FAERS Safety Report 7686399-1 (Version None)
Quarter: 2011Q3

REPORT INFORMATION
  Report Type: 
  Country: None (occurrence: None)
  Receive Date: 20110816
  Receipt Date: 20110802
  Transmission Date: 20111222
  Serious: Yes (Hospitalization, Other)
  Sender: FDA-Public Use
  Company Number: CA-ELI_LILLY_AND_COMPANY-CA201108000700

PATIENT
  Sex: Male

DRUGS (6)
  1. ZYPREXA [Suspect]
     Dosage: 30 MG, UNKNOWN
  2. ZYPREXA [Suspect]
     Dosage: 20 MG, UNKNOWN
  3. ZYPREXA [Suspect]
     Dosage: 10 MG, UNKNOWN
     Dates: start: 19970221
  4. CLONAZEPAM [Concomitant]
  5. ZYPREXA [Suspect]
     Dosage: 5 MG, UNKNOWN
  6. ZYPREXA [Suspect]
     Dosage: 25 MG, UNKNOWN

REACTIONS (9)
  - ELECTROLYTE IMBALANCE [None]
  - TYPE 2 DIABETES MELLITUS [None]
  - OVERDOSE [None]
  - RENAL DISORDER [None]
  - ALANINE AMINOTRANSFERASE INCREASED [None]
  - ASPARTATE AMINOTRANSFERASE INCREASED [None]
  - HYPERTENSION [None]
  - VISUAL IMPAIRMENT [None]
  - BLOOD TRIGLYCERIDES INCREASED [None]
